FAERS Safety Report 8834199 (Version 1)
Quarter: 2012Q4

REPORT INFORMATION
  Report Type: 
  Country: US (occurrence: US)
  Receive Date: 20121010
  Receipt Date: 20121010
  Transmission Date: 20130627
  Serious: Yes (Disabling, Other)
  Sender: FDA-Public Use
  Company Number: US-009507513-1210USA002674

PATIENT

DRUGS (4)
  1. FOSAMAX [Suspect]
     Dosage: UNK
     Route: 048
     Dates: start: 2000, end: 201006
  2. FOSAMAX [Suspect]
     Dosage: UNK
     Route: 048
     Dates: start: 2000, end: 201006
  3. FOSAMAX PLUS D [Suspect]
     Dosage: UNK
     Route: 048
     Dates: start: 2000, end: 201006
  4. ALENDRONATE SODIUM [Suspect]
     Dosage: UNK
     Route: 048
     Dates: start: 2000, end: 201006

REACTIONS (4)
  - Femur fracture [Not Recovered/Not Resolved]
  - Surgery [Unknown]
  - Low turnover osteopathy [Not Recovered/Not Resolved]
  - Skeletal injury [Not Recovered/Not Resolved]
